FAERS Safety Report 11966746 (Version 1)
Quarter: 2016Q1

REPORT INFORMATION
  Report Type: Spontaneous
  Country: US (occurrence: US)
  Receive Date: 20160127
  Receipt Date: 20160127
  Transmission Date: 20160526
  Serious: No
  Sender: FDA-Public Use
  Company Number: US-TEVA-628448ACC

PATIENT
  Age: 58 Year
  Sex: Male

DRUGS (6)
  1. BENDAMUSTINE HYDROCHLORIDE [Suspect]
     Active Substance: BENDAMUSTINE HYDROCHLORIDE
     Indication: WALDENSTROM^S MACROGLOBULINAEMIA
     Route: 042
     Dates: start: 201004
  2. RITUXIMAB [Concomitant]
     Active Substance: RITUXIMAB
     Dates: start: 201003
  3. RITUXIMAB [Concomitant]
     Active Substance: RITUXIMAB
     Indication: WALDENSTROM^S MACROGLOBULINAEMIA
     Dosage: 8 INFUSIONS IN SPRING
     Route: 042
     Dates: start: 2005
  4. RITUXIMAB [Concomitant]
     Active Substance: RITUXIMAB
     Dosage: 4 INFUSIONS
     Route: 042
     Dates: start: 200810
  5. RITUXIMAB [Concomitant]
     Active Substance: RITUXIMAB
     Dosage: 4 INFUSIONS
     Route: 042
     Dates: start: 200904
  6. RITUXIMAB [Concomitant]
     Active Substance: RITUXIMAB
     Dosage: 4 INFUIOSNS IN FALL
     Dates: start: 2009

REACTIONS (1)
  - Prescribed underdose [Unknown]
